FAERS Safety Report 8154127-1 (Version None)
Quarter: 2012Q1

REPORT INFORMATION
  Report Type: 
  Country: None (occurrence: None)
  Receive Date: 20120221
  Receipt Date: 20120207
  Transmission Date: 20120608
  Serious: Yes (Hospitalization)
  Sender: FDA-Public Use
  Company Number: IE-MEDIMMUNE-MEDI-0014894

PATIENT
  Sex: Male

DRUGS (3)
  1. FERROUS SULFATE [Concomitant]
  2. SYNAGIS [Suspect]
     Route: 030
     Dates: start: 20111201, end: 20111201
  3. KAPSOVIT [Concomitant]

REACTIONS (1)
  - MENINGITIS [None]
